FAERS Safety Report 9701914 (Version 1)
Quarter: 2013Q4

REPORT INFORMATION
  Report Type: Spontaneous
  Country: US (occurrence: None)
  Receive Date: 20131120
  Receipt Date: 20131120
  Transmission Date: 20140711
  Serious: Yes (Death)
  Sender: FDA-Public Use
  Company Number: AMAG201300204

PATIENT
  Sex: Male

DRUGS (1)
  1. FERAHEME [Suspect]
     Route: 042
     Dates: start: 201310, end: 201310

REACTIONS (1)
  - Cardio-respiratory arrest [None]
